FAERS Safety Report 8987553 (Version 2)
Quarter: 2013Q2

REPORT INFORMATION
  Report Type: Spontaneous
  Country: JP (occurrence: JP)
  Receive Date: 20121227
  Receipt Date: 20130603
  Transmission Date: 20140414
  Serious: Yes (Hospitalization)
  Sender: FDA-Public Use
  Company Number: PHHY2012JP118118

PATIENT
  Age: 73 Year
  Sex: Male
  Weight: 50 kg

DRUGS (4)
  1. ZOMETA [Suspect]
     Indication: METASTASES TO BONE
     Dosage: 04 MG, UNK
     Dates: start: 20121025
  2. BICALUTAMIDE [Suspect]
     Indication: PROSTATE CANCER
     Dosage: 80 MG, UNK
     Route: 048
     Dates: start: 20121004, end: 20121212
  3. LEUPLIN [Suspect]
     Indication: PROSTATE CANCER
     Dosage: 11.25 MG, UNK
     Route: 058
     Dates: start: 20121015
  4. URIEF [Suspect]
     Indication: DYSURIA
     Dosage: 08 MG, UNK
     Route: 048
     Dates: start: 20121004

REACTIONS (2)
  - Autoimmune hepatitis [Not Recovered/Not Resolved]
  - Hepatic function abnormal [Recovered/Resolved]
